FAERS Safety Report 5261417-9 (Version None)
Quarter: 2007Q1

REPORT INFORMATION
  Report Type: 
  Country: None (occurrence: None)
  Receive Date: 20070307
  Receipt Date: 20070228
  Transmission Date: 20070707
  Serious: Yes (Death)
  Sender: FDA-Public Use
  Company Number: 2007SP003862

PATIENT
  Age: 44 Year
  Sex: Male
  Weight: 72 kg

DRUGS (3)
  1. TEMOZOLOMIDE (S-P) (TEMOZOLOMIDE) [Suspect]
     Indication: MALIGNANT GLIOMA
     Dosage: 180 MG;QD;PO
     Route: 048
     Dates: start: 20070114, end: 20070203
  2. DEXAMETHASONE (CON.) [Concomitant]
  3. LANSOPRAZOLE (CON.) [Concomitant]

REACTIONS (6)
  - HAEMATOTOXICITY [None]
  - HEADACHE [None]
  - NEUTROPENIA [None]
  - RASH [None]
  - THROMBOCYTOPENIA [None]
  - WHITE BLOOD CELL COUNT DECREASED [None]
